FAERS Safety Report 9414590 (Version 2)
Quarter: 2014Q1

REPORT INFORMATION
  Report Type: Spontaneous
  Country: NL (occurrence: NL)
  Receive Date: 20130723
  Receipt Date: 20140110
  Transmission Date: 20141002
  Serious: Yes (Other)
  Sender: FDA-Public Use
  Company Number: NL-TEVA-402829ISR

PATIENT
  Age: 33 Year
  Sex: Female

DRUGS (15)
  1. PREDNISOLONE [Suspect]
     Dosage: 30 MILLIGRAM DAILY;
     Route: 048
  2. PREDNISOLONE [Suspect]
     Dosage: 10 MILLIGRAM DAILY; DOSE REDUCED TO 1 TIME A DAY 1 TABLET
     Route: 048
  3. COPAXONE [Concomitant]
     Dosage: 20 MILLIGRAM DAILY;
     Route: 058
     Dates: start: 20121011
  4. SIMVASTATINE [Concomitant]
     Dosage: 4 MILLIGRAM DAILY;
  5. EUTHYROX [Concomitant]
     Dosage: 25 MILLIGRAM DAILY;
  6. BISACODYL [Concomitant]
     Dosage: 5 ML DAILY; 5 CC ONCE DAILY
  7. VATOUD [Concomitant]
     Dosage: 75 MILLIGRAM DAILY;
  8. TIOMOGEL [Concomitant]
     Dosage: 30 MILLIGRAM DAILY;
  9. TROPICAMIDE [Concomitant]
     Dosage: 1 MILLIGRAM DAILY;
  10. PRED FORTE [Concomitant]
  11. VITAMIN D [Concomitant]
  12. HIRUDOID [Concomitant]
  13. MIRTAZAPINE [Concomitant]
     Dosage: 15 MILLIGRAM DAILY;
  14. TEMAZEPAM [Concomitant]
     Dosage: 10 MILLIGRAM DAILY;
  15. BLOOD THINNER NOS [Concomitant]

REACTIONS (4)
  - Intraocular pressure increased [Not Recovered/Not Resolved]
  - Glaucoma [Recovered/Resolved]
  - Vision blurred [Not Recovered/Not Resolved]
  - Photophobia [Not Recovered/Not Resolved]
